FAERS Safety Report 5752269-9 (Version None)
Quarter: 2008Q2

REPORT INFORMATION
  Report Type: 
  Country: None (occurrence: None)
  Receive Date: 20080529
  Receipt Date: 20080522
  Transmission Date: 20081010
  Serious: Yes (Other)
  Sender: FDA-Public Use
  Company Number: GB-ABBOTT-08P-167-0453287-00

PATIENT
  Sex: Female

DRUGS (1)
  1. VALPROIC ACID [Suspect]
     Indication: MYOCLONIC EPILEPSY
     Dates: start: 19900801

REACTIONS (2)
  - ABORTION SPONTANEOUS [None]
  - UPPER RESPIRATORY TRACT INFECTION [None]
